FAERS Safety Report 11092773 (Version 1)
Quarter: 2015Q2

REPORT INFORMATION
  Report Type: Spontaneous
  Country: CA (occurrence: CA)
  Receive Date: 20150506
  Receipt Date: 20150506
  Transmission Date: 20150821
  Serious: Yes (Life-Threatening, Hospitalization, Other)
  Sender: FDA-Public Use
  Company Number: CA-EMD SERONO-7107277

PATIENT
  Age: 54 Year
  Sex: Female

DRUGS (2)
  1. REBIF [Suspect]
     Active Substance: INTERFERON BETA-1A
     Route: 058
     Dates: start: 20110610, end: 20141201
  2. REBIF [Suspect]
     Active Substance: INTERFERON BETA-1A
     Indication: SECONDARY PROGRESSIVE MULTIPLE SCLEROSIS
     Route: 058
     Dates: start: 20081209, end: 20110505

REACTIONS (11)
  - Neuralgia [Recovering/Resolving]
  - Off label use [Recovered/Resolved]
  - Cardiac failure [Recovering/Resolving]
  - Pneumonia [Recovering/Resolving]
  - Fall [Unknown]
  - Diabetes mellitus [Recovering/Resolving]
  - Femur fracture [Recovering/Resolving]
  - Skin ulcer [Recovering/Resolving]
  - Hypertension [Recovering/Resolving]
  - Renal failure [Recovering/Resolving]
  - Blood potassium increased [Recovering/Resolving]

NARRATIVE: CASE EVENT DATE: 201101
